FAERS Safety Report 8369497-9 (Version None)
Quarter: 2012Q2

REPORT INFORMATION
  Report Type: 
  Country: None (occurrence: None)
  Receive Date: 20120518
  Receipt Date: 20120516
  Transmission Date: 20120825
  Serious: Yes (Other)
  Sender: FDA-Public Use
  Company Number: US-PFIZER INC-2012119292

PATIENT
  Sex: Female
  Weight: 46.259 kg

DRUGS (2)
  1. LAMICTAL [Suspect]
     Indication: CONVULSION
     Dosage: 50 MG,DAILY
     Dates: start: 20120412, end: 20120508
  2. DILANTIN [Suspect]
     Indication: CONVULSION
     Dosage: 300 MG,DAILY
     Dates: start: 20120424, end: 20120514

REACTIONS (5)
  - DRUG LEVEL INCREASED [None]
  - POOR QUALITY SLEEP [None]
  - CONVULSION [None]
  - HEADACHE [None]
  - BRAIN STEM STROKE [None]
